FAERS Safety Report 18384576 (Version 1)
Quarter: 2020Q4

REPORT INFORMATION
  Report Type: Spontaneous
  Country: US (occurrence: US)
  Receive Date: 20201014
  Receipt Date: 20201014
  Transmission Date: 20210114
  Serious: Yes (Hospitalization)
  Sender: FDA-Public Use
  Company Number: US-SEATTLE GENETICS-2020SGN03900

PATIENT
  Sex: Female

DRUGS (1)
  1. TUKYSA [Suspect]
     Active Substance: TUCATINIB
     Indication: BREAST CANCER FEMALE
     Dosage: UNK
     Route: 065

REACTIONS (7)
  - Medication error [Unknown]
  - Product dose omission issue [Unknown]
  - Headache [Unknown]
  - Diarrhoea [Unknown]
  - Hypersomnia [Unknown]
  - Nausea [Unknown]
  - Fall [Unknown]
